FAERS Safety Report 13515384 (Version 1)
Quarter: 2017Q2

REPORT INFORMATION
  Report Type: Spontaneous
  Country: TR (occurrence: TR)
  Receive Date: 20170504
  Receipt Date: 20170504
  Transmission Date: 20170830
  Serious: Yes (Hospitalization, Other)
  Sender: FDA-Public Use
  Company Number: TR-APOTEX-2017AP011391

PATIENT
  Age: 18 Year
  Sex: Female

DRUGS (1)
  1. AS-AMLO [Suspect]
     Active Substance: AMLODIPINE BESYLATE
     Indication: SUICIDE ATTEMPT
     Dosage: 400 MG, TOTAL
     Route: 048

REACTIONS (10)
  - Hypoxia [Recovered/Resolved]
  - Toxicity to various agents [Recovered/Resolved]
  - Hypotension [Recovered/Resolved]
  - Troponin increased [Recovered/Resolved]
  - Overdose [Recovered/Resolved]
  - Pleural effusion [Recovered/Resolved]
  - Myocardial depression [Recovered/Resolved]
  - Sinus bradycardia [Recovered/Resolved]
  - Bradycardia [Recovered/Resolved]
  - Suicide attempt [Recovered/Resolved]
